FAERS Safety Report 13411862 (Version 4)
Quarter: 2022Q2

REPORT INFORMATION
  Report Type: Spontaneous
  Country: US (occurrence: US)
  Receive Date: 20170406
  Receipt Date: 20220602
  Transmission Date: 20220721
  Serious: No
  Sender: FDA-Public Use
  Company Number: US-JNJFOC-20170304324

PATIENT
  Age: 14 Year
  Sex: Male

DRUGS (8)
  1. RISPERDAL [Suspect]
     Active Substance: RISPERIDONE
     Indication: Attention deficit hyperactivity disorder
     Dosage: START DATE: 18/JAN/2007
     Route: 048
  2. RISPERDAL [Suspect]
     Active Substance: RISPERIDONE
     Indication: Affective disorder
     Dosage: AT NIGHT, THERAPY START DATE 19/JAN/2007 AND STOP DATE: 01/MAR/2007
     Route: 048
  3. RISPERDAL [Suspect]
     Active Substance: RISPERIDONE
     Dosage: 1 MG TABLET IN THE MORNING AND 2 MG AT NIGHT, START DATE: 12/MAR/2007 AND STOP DATE: 12/MAR/2007
     Route: 048
  4. RISPERDAL [Suspect]
     Active Substance: RISPERIDONE
     Dosage: THERAPY START DATE: 06/JUL/2007 AND STOP DATE: 01/NOV/2007
     Route: 048
  5. RISPERDAL [Suspect]
     Active Substance: RISPERIDONE
     Dosage: 0.5 MG, 2 TABS IN MORNING FOR 10 DAYS, THEN ONE TABLET EVERY MORNING, THERAPY START DATE: 06/NOV/200
     Route: 048
  6. RISPERDAL [Suspect]
     Active Substance: RISPERIDONE
     Dosage: DOSES OF 1 MG, 2 MG AND 3 MG, THERAPY START DATE: 26/MAR/2008 AND STOP DATE: 03/JUN/2009
     Route: 048
  7. RISPERDAL [Suspect]
     Active Substance: RISPERIDONE
     Dosage: STOP DATE: 06/AUG/2009
     Route: 048
  8. RISPERIDONE [Suspect]
     Active Substance: RISPERIDONE
     Indication: Attention deficit hyperactivity disorder
     Dosage: 0.5 MG, 2 MG AND 3 MG, THERAPY START DATE 11/JUN/2008 AND STOP DATE: 06/AUG/2009
     Route: 048

REACTIONS (4)
  - Emotional distress [Unknown]
  - Gynaecomastia [Unknown]
  - Off label use [Unknown]
  - Product use in unapproved indication [Unknown]

NARRATIVE: CASE EVENT DATE: 20070111
